FAERS Safety Report 21840671 (Version 2)
Quarter: 2023Q1

REPORT INFORMATION
  Report Type: Spontaneous
  Country: AR (occurrence: AR)
  Receive Date: 20230110
  Receipt Date: 20230117
  Transmission Date: 20230418
  Serious: Yes (Hospitalization, Other)
  Sender: FDA-Public Use
  Company Number: AR-ALKEM LABORATORIES LIMITED-AR-ALKEM-2022-15195

PATIENT
  Age: 57 Year
  Sex: Male

DRUGS (6)
  1. MYCOPHENOLATE MOFETIL [Interacting]
     Active Substance: MYCOPHENOLATE MOFETIL
     Indication: Immunosuppression
     Dosage: 500 MILLIGRAM, TID
     Route: 065
  2. FENOFIBRATE [Interacting]
     Active Substance: FENOFIBRATE
     Indication: Blood triglycerides increased
     Dosage: 200 MG/DAY
     Route: 065
  3. MEPREDNISONE [Suspect]
     Active Substance: MEPREDNISONE
     Indication: Immunosuppression
     Dosage: 4 MILLIGRAM, OD
     Route: 065
  4. LOSARTAN [Concomitant]
     Active Substance: LOSARTAN
     Indication: Hypertension
     Dosage: 50 MILLIGRAM, OD
     Route: 065
  5. EZETIMIBE [Concomitant]
     Active Substance: EZETIMIBE
     Indication: Dyslipidaemia
     Dosage: 10 MILLIGRAM
     Route: 065
  6. SIMVASTATIN [Concomitant]
     Active Substance: SIMVASTATIN
     Indication: Dyslipidaemia
     Dosage: 20 MILLIGRAM
     Route: 065

REACTIONS (3)
  - Febrile neutropenia [Recovered/Resolved]
  - Drug interaction [Unknown]
  - Bone marrow failure [Recovered/Resolved]
